FAERS Safety Report 4370276-8 (Version None)
Quarter: 2004Q2

REPORT INFORMATION
  Report Type: 
  Country: None (occurrence: None)
  Receive Date: 20040603
  Receipt Date: 20040405
  Transmission Date: 20050107
  Serious: No
  Sender: FDA-Public Use
  Company Number: US-BRISTOL-MYERS SQUIBB COMPANY-12550943

PATIENT
  Age: 11 Year
  Sex: Male
  Weight: 50 kg

DRUGS (1)
  1. ABILIFY [Suspect]
     Indication: BIPOLAR DISORDER
     Dosage: STARTED 5 MG THEN INCR TO 10 MG
     Route: 048

REACTIONS (1)
  - DYSKINESIA [None]
